FAERS Safety Report 9447223 (Version 2)
Quarter: 2013Q3

REPORT INFORMATION
  Report Type: Spontaneous
  Country: US (occurrence: US)
  Receive Date: 20130807
  Receipt Date: 20130905
  Transmission Date: 20140515
  Serious: Yes (Other)
  Sender: FDA-Public Use
  Company Number: US-ELI_LILLY_AND_COMPANY-US201307010071

PATIENT
  Sex: Female

DRUGS (20)
  1. HUMULIN BUFFERED REGULAR [Suspect]
     Indication: TYPE 2 DIABETES MELLITUS
     Dosage: 5 IU, TID
     Dates: start: 20130726
  2. HUMULIN NPH [Suspect]
     Indication: TYPE 2 DIABETES MELLITUS
     Dosage: 15 IU, BID
  3. JANUVIA [Concomitant]
     Dosage: 50 MG, BID
  4. PRAVACHOL [Concomitant]
     Dosage: 40 MG, QD
  5. TRICOR [Concomitant]
     Dosage: 145 MG, QD
  6. ATENOLOL [Concomitant]
     Dosage: 50 MG, BID
  7. DIOVAN [Concomitant]
     Dosage: 160 MG, QD
  8. ADVAIR DISKUS [Concomitant]
     Dosage: 1 DF, BID
  9. ALLEGRA [Concomitant]
     Dosage: 60 MG, QD
  10. ALLEGRA-D [Concomitant]
     Dosage: 120 MG, QD
  11. ASPIRIN [Concomitant]
     Dosage: 81 MG, QID
  12. BACTROBAN                          /00753901/ [Concomitant]
     Dosage: UNK, PRN
  13. MIDRIN [Concomitant]
  14. PREVACID [Concomitant]
     Dosage: 30 MG, BID
  15. MECLIZINE HCL [Concomitant]
     Dosage: 25 MG, PRN
  16. NASOCORT [Concomitant]
     Dosage: UNK, BID
  17. LEVAQUIN [Concomitant]
     Dosage: 324 MG, OTHER
  18. VESICARE [Concomitant]
     Dosage: 5 MG, QD
  19. XOPENEX HFA [Concomitant]
     Dosage: UNK, BID
  20. ONDANSETRON HCL [Concomitant]
     Dosage: 2 MG, BID

REACTIONS (6)
  - Swelling face [Unknown]
  - Pharyngeal oedema [Unknown]
  - Drug hypersensitivity [Unknown]
  - Blood glucose increased [Unknown]
  - Injection site urticaria [Unknown]
  - Injection site rash [Unknown]
